FAERS Safety Report 5291914-1 (Version None)
Quarter: 2007Q2

REPORT INFORMATION
  Report Type: 
  Country: None (occurrence: None)
  Receive Date: 20070403
  Receipt Date: 20070326
  Transmission Date: 20071010
  Serious: Yes (Death)
  Sender: FDA-Public Use
  Company Number: 430001E07NLD

PATIENT
  Age: 71 Year
  Sex: Female

DRUGS (6)
  1. NOVANTRONE [Suspect]
     Dosage: 200 MG
  2. CYTARABINE [Suspect]
     Dosage: 200 MG
     Dates: start: 20050123, end: 20050127
  3. ETOPOSIDE [Suspect]
     Dosage: 190 MG
     Dates: start: 20050123, end: 20050125
  4. IDARUBICIN HCL [Suspect]
     Dosage: 15 MG
     Dates: start: 20050123, end: 20050127
  5. VANCOMYCIN /00314401/ [Concomitant]
  6. CIPROFLOXACIN /00697201/ [Concomitant]

REACTIONS (3)
  - CARDIAC ARREST [None]
  - RESPIRATORY ARREST [None]
  - SUDDEN DEATH [None]
